FAERS Safety Report 12311011 (Version 1)
Quarter: 2016Q2

REPORT INFORMATION
  Report Type: Spontaneous
  Country: US (occurrence: US)
  Receive Date: 20160427
  Receipt Date: 20160427
  Transmission Date: 20160815
  Serious: Yes (Hospitalization)
  Sender: FDA-Public Use
  Company Number: US-CELGENEUS-USA-2016046719

PATIENT
  Age: 5 Year
  Sex: Male

DRUGS (13)
  1. FENOFIBRATE. [Concomitant]
     Active Substance: FENOFIBRATE
     Indication: BRAIN NEOPLASM
     Route: 048
     Dates: start: 20150224
  2. AVASTIN [Concomitant]
     Active Substance: BEVACIZUMAB
     Indication: BRAIN NEOPLASM
     Route: 041
     Dates: start: 20150303
  3. ETOPOSIDE. [Concomitant]
     Active Substance: ETOPOSIDE
     Indication: BRAIN NEOPLASM
     Route: 048
     Dates: start: 20150224
  4. ALBUTEROL. [Concomitant]
     Active Substance: ALBUTEROL
     Indication: COUGH
     Route: 065
  5. ZOFRAN [Concomitant]
     Active Substance: ONDANSETRON HYDROCHLORIDE
     Indication: NAUSEA
     Route: 041
     Dates: start: 20150224
  6. SEPTRA [Concomitant]
     Active Substance: SULFAMETHOXAZOLE\TRIMETHOPRIM
     Indication: PROPHYLAXIS
     Route: 048
  7. CYTOXAN [Concomitant]
     Active Substance: CYCLOPHOSPHAMIDE
     Indication: BRAIN NEOPLASM
     Route: 048
     Dates: start: 20150318
  8. RANITIDINE. [Concomitant]
     Active Substance: RANITIDINE
     Indication: COUGH
     Route: 048
     Dates: start: 20150224
  9. CELEBREX [Concomitant]
     Active Substance: CELECOXIB
     Indication: BRAIN NEOPLASM
     Route: 048
     Dates: start: 20150224
  10. THALOMID [Suspect]
     Active Substance: THALIDOMIDE
     Route: 048
     Dates: start: 201504, end: 20160307
  11. THALOMID [Suspect]
     Active Substance: THALIDOMIDE
     Route: 048
     Dates: start: 20160311
  12. THALOMID [Suspect]
     Active Substance: THALIDOMIDE
     Indication: BRAIN NEOPLASM
     Route: 048
     Dates: start: 20150224
  13. ZOFRAN [Concomitant]
     Active Substance: ONDANSETRON HYDROCHLORIDE
     Indication: VOMITING

REACTIONS (1)
  - Constipation [Recovered/Resolved]

NARRATIVE: CASE EVENT DATE: 20150307
